FAERS Safety Report 18777172 (Version 1)
Quarter: 2021Q1

REPORT INFORMATION
  Report Type: Other
  Country: JP (occurrence: JP)
  Receive Date: 20210122
  Receipt Date: 20210122
  Transmission Date: 20210419
  Serious: Yes (Hospitalization)
  Sender: FDA-Public Use
  Company Number: JP-UROVANT SCIENCES GMBH-202101-URV-000009

PATIENT
  Age: 6 Decade
  Sex: Female

DRUGS (3)
  1. TOVIAZ [Concomitant]
     Active Substance: FESOTERODINE FUMARATE
     Indication: HYPERTONIC BLADDER
     Dosage: UNK
     Route: 048
  2. BEOVA TABLETS [Suspect]
     Active Substance: VIBEGRON
     Indication: HYPERTONIC BLADDER
     Dosage: 50 MILLIGRAM, QD
     Route: 048
     Dates: start: 20201116
  3. ANXIOLYTICS [Concomitant]
     Active Substance: UNSPECIFIED INGREDIENT
     Indication: HYPERTENSION

REACTIONS (1)
  - Ileus [Recovered/Resolved]

NARRATIVE: CASE EVENT DATE: 202012
